FAERS Safety Report 5120551-4 (Version None)
Quarter: 2006Q4

REPORT INFORMATION
  Report Type: 
  Country: None (occurrence: None)
  Receive Date: 20061002
  Receipt Date: 20060705
  Transmission Date: 20070319
  Serious: Yes (Death, Hospitalization)
  Sender: FDA-Public Use
  Company Number: 2006BH010432

PATIENT
  Age: 82 Year
  Sex: Male
  Weight: 72 kg

DRUGS (16)
  1. EXTRANEAL [Suspect]
     Indication: PERITONEAL DIALYSIS
     Dosage: 2L;IP
     Route: 033
     Dates: start: 20051201
  2. LOXEN [Concomitant]
  3. TENORMIN [Concomitant]
  4. ALFUZOSIN [Concomitant]
  5. LASIX [Concomitant]
  6. TAHOR [Concomitant]
  7. FERROUS SULFATE TAB [Concomitant]
  8. EUPRESSYL [Concomitant]
  9. PLAVIX [Concomitant]
  10. OMEPRAZOLE [Concomitant]
  11. ALPRESS [Concomitant]
  12. HYDROXYZINE [Concomitant]
  13. VITAMIN B1 AND B6 [Concomitant]
  14. HALDOL [Concomitant]
  15. HYPERIUM [Concomitant]
  16. LANTUS [Concomitant]

REACTIONS (3)
  - CATHETER RELATED COMPLICATION [None]
  - DEVICE BREAKAGE [None]
  - HYPOGLYCAEMIC COMA [None]
